FAERS Safety Report 4882687-2 (Version None)
Quarter: 2006Q1

REPORT INFORMATION
  Report Type: 
  Country: None (occurrence: None)
  Receive Date: 20060117
  Receipt Date: 20050422
  Transmission Date: 20060701
  Serious: Yes (Disabling)
  Sender: FDA-Public Use
  Company Number: US-MERCK-0504USA04202

PATIENT
  Age: 59 Year
  Sex: Male
  Weight: 84 kg

DRUGS (2)
  1. VIOXX [Suspect]
     Indication: PAIN
     Route: 048
     Dates: start: 19990101, end: 20020301
  2. VIOXX [Suspect]
     Route: 048
     Dates: start: 19990101, end: 20020301

REACTIONS (4)
  - BRAIN STEM SYNDROME [None]
  - CEREBROVASCULAR ACCIDENT [None]
  - COLON CANCER [None]
  - THROMBOSIS [None]
